FAERS Safety Report 8492335-0 (Version None)
Quarter: 2012Q3

REPORT INFORMATION
  Report Type: 
  Country: None (occurrence: None)
  Receive Date: 20120706
  Receipt Date: 20120628
  Transmission Date: 20120928
  Serious: Yes (Hospitalization)
  Sender: FDA-Public Use
  Company Number: DE-UCBSA-049473

PATIENT
  Sex: Male
  Weight: 90 kg

DRUGS (10)
  1. CIMZIA [Suspect]
     Dosage: NO OF DOSES RECEIVED: 1
     Route: 058
     Dates: start: 20120118, end: 20120201
  2. BISOPROLOL FUMARATE [Concomitant]
     Indication: HYPERTENSION
     Dates: start: 20110101
  3. METHOTREXATE [Concomitant]
     Indication: RHEUMATOID ARTHRITIS
     Dates: start: 20100203, end: 20111214
  4. LEVOTHYROXINE SODIUM [Concomitant]
     Indication: THYROID DISORDER
     Dates: start: 20110101
  5. NITROFURANTOIN [Concomitant]
     Indication: URINARY TRACT INFECTION
     Dates: start: 20111201
  6. IRBESARTAN [Concomitant]
     Indication: HYPERTENSION
     Dates: start: 20110101
  7. CIMZIA [Suspect]
     Indication: RHEUMATOID ARTHRITIS
     Dosage: 3X400 MG
     Route: 058
     Dates: start: 20111123, end: 20111219
  8. SULFASALAZINE [Concomitant]
     Indication: RHEUMATOID ARTHRITIS
     Dates: start: 20101201, end: 20111121
  9. OMEPRAZOLE [Concomitant]
     Indication: GASTROOESOPHAGEAL REFLUX DISEASE
     Dates: start: 20110101
  10. PREDNISOLONE [Concomitant]
     Indication: RHEUMATOID ARTHRITIS
     Dates: start: 20110202, end: 20111201

REACTIONS (2)
  - URINARY TRACT INFECTION [None]
  - PNEUMONIA [None]
